FAERS Safety Report 7031046-5 (Version None)
Quarter: 2010Q4

REPORT INFORMATION
  Report Type: 
  Country: None (occurrence: None)
  Receive Date: 20101001
  Receipt Date: 20100923
  Transmission Date: 20110411
  Serious: Yes (Hospitalization)
  Sender: FDA-Public Use
  Company Number: IMP_05036_2010

PATIENT
  Age: 46 Year
  Sex: Female
  Weight: 72.6 kg

DRUGS (7)
  1. LORATADINE AND PSEUDOEPHEDRINE SULFATE [Suspect]
     Indication: RHINITIS
     Dosage: 1 DF BID EXTENDED RELEASE ORAL
     Route: 048
     Dates: start: 20100316, end: 20100321
  2. METFORMIN [Concomitant]
  3. METFORMIN [Concomitant]
  4. SIMVASTATIN [Concomitant]
  5. HYZAAR [Concomitant]
  6. AMLODIPINE [Concomitant]
  7. ASPIRIN [Concomitant]

REACTIONS (15)
  - ABNORMAL LOSS OF WEIGHT [None]
  - AMNESIA [None]
  - BLOOD PRESSURE DIASTOLIC DECREASED [None]
  - BLOOD PRESSURE SYSTOLIC INCREASED [None]
  - CEREBROVASCULAR ACCIDENT [None]
  - DECREASED APPETITE [None]
  - DRUG HYPERSENSITIVITY [None]
  - DRY MOUTH [None]
  - DYSURIA [None]
  - HEART RATE INCREASED [None]
  - INSOMNIA [None]
  - MOOD ALTERED [None]
  - RASH [None]
  - RESTLESSNESS [None]
  - SPEECH DISORDER [None]
